FAERS Safety Report 19271688 (Version 3)
Quarter: 2024Q4

REPORT INFORMATION
  Report Type: Report from Study
  Country: IT (occurrence: IT)
  Receive Date: 20210519
  Receipt Date: 20241223
  Transmission Date: 20250115
  Serious: Yes (Other)
  Sender: AUROBINDO
  Company Number: IT-EMA-DD-20180614-KHAREEVHP-103728

PATIENT
  Age: 15 Year
  Sex: Female

DRUGS (8)
  1. MELPHALAN [Suspect]
     Active Substance: MELPHALAN
     Indication: Primitive neuroectodermal tumour
     Dosage: 0.14 GRAM PER SQUARE METRE, CYCLICAL
     Route: 065
  2. MELPHALAN [Suspect]
     Active Substance: MELPHALAN
     Indication: Bone marrow conditioning regimen
  3. BUSULFAN [Suspect]
     Active Substance: BUSULFAN
     Indication: Primitive neuroectodermal tumour
     Dosage: 0.5 GRAM PER SQUARE METRE, CYCLICAL
     Route: 065
  4. BUSULFAN [Suspect]
     Active Substance: BUSULFAN
     Indication: Bone marrow conditioning regimen
  5. IFOSFAMIDE [Suspect]
     Active Substance: IFOSFAMIDE
     Indication: Primitive neuroectodermal tumour
     Dosage: 0.39 GRAM PER SQUARE METRE, CYCLICAL
     Route: 065
  6. IFOSFAMIDE [Suspect]
     Active Substance: IFOSFAMIDE
     Indication: Bone marrow conditioning regimen
  7. CYCLOPHOSPHAMIDE [Suspect]
     Active Substance: CYCLOPHOSPHAMIDE
     Indication: Primitive neuroectodermal tumour
     Dosage: 10.5 GRAM PER SQUARE METRE
     Route: 065
  8. CYCLOPHOSPHAMIDE [Suspect]
     Active Substance: CYCLOPHOSPHAMIDE
     Indication: Bone marrow conditioning regimen

REACTIONS (3)
  - Amenorrhoea [Not Recovered/Not Resolved]
  - Infertility female [Unknown]
  - Ovarian cyst [Unknown]
